FAERS Safety Report 8708567 (Version 2)
Quarter: 2013Q4

REPORT INFORMATION
  Report Type: Spontaneous
  Country: US (occurrence: US)
  Receive Date: 20120806
  Receipt Date: 20131031
  Transmission Date: 20140711
  Serious: No
  Sender: FDA-Public Use
  Company Number: US-009507513-2012SP035028

PATIENT
  Sex: Female

DRUGS (1)
  1. COPPERTONE ULTRAGUARD [Suspect]
     Indication: PRODUCT USED FOR UNKNOWN INDICATION
     Dosage: 3 DF, QD
     Route: 061
     Dates: start: 20120505

REACTIONS (5)
  - Poisoning [Not Recovered/Not Resolved]
  - Sunburn [Not Recovered/Not Resolved]
  - Back pain [Not Recovered/Not Resolved]
  - Insomnia [Not Recovered/Not Resolved]
  - No therapeutic response [Unknown]
